FAERS Safety Report 6425163-8 (Version None)
Quarter: 2009Q4

REPORT INFORMATION
  Report Type: 
  Country: None (occurrence: None)
  Receive Date: 20091103
  Receipt Date: 20091102
  Transmission Date: 20100525
  Serious: Yes (Death)
  Sender: FDA-Public Use
  Company Number: US-BAYER-200937569GPV

PATIENT
  Age: 47 Year
  Sex: Male
  Weight: 62 kg

DRUGS (5)
  1. SORAFENIB [Suspect]
     Indication: HEPATIC NEOPLASM MALIGNANT
     Dosage: TOTAL DAILY DOSE: 800 MG  UNIT DOSE: 200 MG
     Route: 048
     Dates: start: 20090603, end: 20090822
  2. ENTECAVIR [Concomitant]
     Dates: start: 20090502, end: 20090826
  3. HEPA MERZ [ORNITHINE ASPARTATE] [Concomitant]
     Dates: start: 20090603, end: 20090826
  4. LACTULOSE [Concomitant]
     Dates: start: 20090617, end: 20090826
  5. URSODIOL [Concomitant]
     Dates: start: 20090429, end: 20090826

REACTIONS (3)
  - DIARRHOEA [None]
  - DISEASE PROGRESSION [None]
  - HEPATIC NEOPLASM MALIGNANT [None]
